FAERS Safety Report 9874724 (Version 2)
Quarter: 2014Q1

REPORT INFORMATION
  Report Type: Report from Study
  Country: GB (occurrence: GB)
  Receive Date: 20140206
  Receipt Date: 20140206
  Transmission Date: 20141002
  Serious: Yes (Death, Other)
  Sender: FDA-Public Use
  Company Number: PHFR2013GB006408

PATIENT
  Age: 86 Year
  Sex: Female
  Weight: 70 kg

DRUGS (15)
  1. INDACATEROL [Suspect]
     Indication: CHRONIC OBSTRUCTIVE PULMONARY DISEASE
     Dosage: 300 UG, DAILY
     Dates: start: 20120926
  2. INDACATEROL [Suspect]
     Dosage: 300 UG, DAILY
     Dates: start: 20121005, end: 20130213
  3. BISOPROLOL [Concomitant]
     Dosage: 2.5 MG, QD
  4. FUROSEMIDE [Concomitant]
     Dosage: 20 MG, QD
  5. LISINOPRIL [Concomitant]
     Dosage: 10 MG, QD
     Route: 048
  6. CLOPIDOGREL [Concomitant]
     Dosage: 75 MG, QD
     Route: 048
  7. SALBUTAMOL [Concomitant]
     Dosage: 200 UG, UNK
  8. COLECALCIFEROL [Concomitant]
     Dosage: 2 DF, QD
  9. CALCIUM [Concomitant]
     Dosage: 2 DF, QD
  10. RISEDRONATE [Concomitant]
     Dosage: 35 MG, QD
     Route: 048
  11. HYDROXOCOBALAMIN [Concomitant]
  12. CHEMOTHERAPEUTICS NOS [Concomitant]
  13. RADIOTHERAPY [Concomitant]
  14. HERCEPTIN [Concomitant]
  15. INFLUENZA VACCINE [Concomitant]
     Indication: INFLUENZA
     Dosage: UNK UKN, UNK
     Dates: start: 20121102

REACTIONS (15)
  - Breast cancer metastatic [Fatal]
  - Cardiac arrest [Unknown]
  - Lower respiratory tract infection [Not Recovered/Not Resolved]
  - Cellulitis [Not Recovered/Not Resolved]
  - Chronic obstructive pulmonary disease [Recovered/Resolved]
  - Dyspnoea [Unknown]
  - General physical health deterioration [Unknown]
  - Full blood count abnormal [Unknown]
  - Glomerular filtration rate abnormal [Recovered/Resolved]
  - C-reactive protein abnormal [Unknown]
  - Blood urea abnormal [Recovered/Resolved]
  - Blood electrolytes abnormal [Recovered/Resolved]
  - Liver function test abnormal [Recovered/Resolved]
  - Bone scan abnormal [Unknown]
  - Blood glucose abnormal [Unknown]
